FAERS Safety Report 8423660-7 (Version None)
Quarter: 2012Q2

REPORT INFORMATION
  Report Type: 
  Country: None (occurrence: None)
  Receive Date: 20120608
  Receipt Date: 20120605
  Transmission Date: 20120825
  Serious: Yes (Hospitalization, Other)
  Sender: FDA-Public Use
  Company Number: PHHY2012DE048398

PATIENT
  Age: 25 Year
  Sex: Female

DRUGS (1)
  1. CITALOPRAM HYDROBROMIDE [Suspect]
     Indication: DEPRESSION
     Dosage: INCREASING DOSES (20 TO 60 MG)

REACTIONS (10)
  - OPTIC NEURITIS [None]
  - DEPRESSION [None]
  - HEADACHE [None]
  - SCOTOMA [None]
  - DYSAESTHESIA [None]
  - SLEEP DISORDER [None]
  - MOOD SWINGS [None]
  - GALACTORRHOEA [None]
  - MYDRIASIS [None]
  - PARAESTHESIA [None]
